FAERS Safety Report 7914942-3 (Version None)
Quarter: 2011Q4

REPORT INFORMATION
  Report Type: 
  Country: None (occurrence: None)
  Receive Date: 20111115
  Receipt Date: 20111107
  Transmission Date: 20120403
  Serious: Yes (Hospitalization)
  Sender: FDA-Public Use
  Company Number: JP-ROCHE-1010674

PATIENT
  Age: 41 Year
  Sex: Male

DRUGS (14)
  1. TACROLIMUS [Suspect]
     Route: 042
     Dates: start: 20061206, end: 20061208
  2. MYCOPHENOLATE MOFETIL (CELLCEPT) [Suspect]
     Route: 048
     Dates: start: 20070308, end: 20070930
  3. PREDNISOLONE AND PREDNISOLONE ACETATE AND PREDNISOLONE SODIUM SUCCINAT [Suspect]
     Route: 042
     Dates: start: 20061207, end: 20061212
  4. MYCOPHENOLATE MOFETIL (CELLCEPT) [Suspect]
     Route: 048
     Dates: start: 20071001
  5. MYCOPHENOLATE MOFETIL (CELLCEPT) [Suspect]
     Route: 048
  6. NOVORAPID [Concomitant]
     Indication: TYPE 1 DIABETES MELLITUS
     Dosage: 4-40 UNITS
     Route: 058
     Dates: start: 20061214
  7. MYCOPHENOLATE MOFETIL (CELLCEPT) [Suspect]
     Indication: PROPHYLAXIS AGAINST TRANSPLANT REJECTION
     Route: 048
     Dates: start: 20061207, end: 20070307
  8. TACROLIMUS [Suspect]
     Dosage: 2-10MG
     Route: 048
     Dates: start: 20061209
  9. SIMULECT [Concomitant]
     Indication: PROPHYLAXIS AGAINST TRANSPLANT REJECTION
     Route: 042
     Dates: start: 20061206, end: 20061206
  10. SOLU-MEDROL [Concomitant]
     Indication: PROPHYLAXIS AGAINST TRANSPLANT REJECTION
     Route: 042
     Dates: start: 20061206, end: 20061206
  11. TACROLIMUS [Suspect]
     Indication: PROPHYLAXIS AGAINST TRANSPLANT REJECTION
     Dosage: 5-10MG
     Route: 048
     Dates: start: 20061201, end: 20061205
  12. PREDNISOLONE AND PREDNISOLONE ACETATE AND PREDNISOLONE SODIUM SUCCINAT [Suspect]
     Indication: PROPHYLAXIS AGAINST TRANSPLANT REJECTION
     Dosage: 5-40MG
     Route: 048
     Dates: start: 20061213
  13. SIMULECT [Concomitant]
     Route: 042
     Dates: start: 20061210, end: 20061210
  14. INSULIN [Concomitant]
     Indication: TYPE 1 DIABETES MELLITUS
     Dosage: 8-42 UNITS
     Route: 058
     Dates: start: 19750101

REACTIONS (4)
  - PANCREATIC CYST [None]
  - CYTOMEGALOVIRUS INFECTION [None]
  - URINARY TRACT INFECTION [None]
  - EPSTEIN-BARR VIRUS ASSOCIATED LYMPHOPROLIFERATIVE DISORDER [None]
